FAERS Safety Report 4964421-0 (Version None)
Quarter: 2006Q1

REPORT INFORMATION
  Report Type: 
  Country: None (occurrence: None)
  Receive Date: 20060331
  Receipt Date: 20060321
  Transmission Date: 20060701
  Serious: Yes (Hospitalization, Other)
  Sender: FDA-Public Use
  Company Number: HQWYE816304AUG04

PATIENT
  Age: 44 Year
  Sex: Female
  Weight: 80.81 kg

DRUGS (6)
  1. PREMARIN [Suspect]
     Dosage: UNK
     Route: 065
  2. ESTRACE [Suspect]
     Dosage: UNKNOWN
     Route: 065
     Dates: start: 19950601, end: 19980501
  3. ESTRIOL (ESTRIOL) [Suspect]
     Dosage: UNK
     Route: 065
  4. ORTH TRI-CYCLEN (ETHINYLESTRADIOL/NORGESTIMATE) [Suspect]
     Dosage: UNK
     Route: 065
  5. PROGESTERONE [Suspect]
     Dosage: UNK
     Route: 065
  6. YASMIN [Suspect]
     Dosage: UNK
     Route: 065

REACTIONS (5)
  - ANXIETY [None]
  - BREAST CANCER METASTATIC [None]
  - DEPRESSION [None]
  - METASTASES TO LYMPH NODES [None]
  - SPLEEN DISORDER [None]
